FAERS Safety Report 5455888-2 (Version None)
Quarter: 2007Q3

REPORT INFORMATION
  Report Type: 
  Country: None (occurrence: None)
  Receive Date: 20070918
  Receipt Date: 20070330
  Transmission Date: 20080115
  Serious: Yes (Other)
  Sender: FDA-Public Use
  Company Number: US-ASTRAZENECA-2006UW24117

PATIENT
  Sex: Female
  Weight: 84.1 kg

DRUGS (5)
  1. SEROQUEL [Suspect]
     Indication: BIPOLAR DISORDER
     Route: 048
     Dates: start: 19990101, end: 20010101
  2. WEIGHT SMART [Concomitant]
     Indication: WEIGHT CONTROL
  3. ZYPREXA [Concomitant]
     Dates: start: 20010101, end: 20010101
  4. LITHIUM [Concomitant]
  5. EFFEXOR [Concomitant]
     Dates: start: 20000101

REACTIONS (1)
  - TARDIVE DYSKINESIA [None]
